FAERS Safety Report 5336628-4 (Version None)
Quarter: 2007Q2

REPORT INFORMATION
  Report Type: 
  Country: None (occurrence: None)
  Receive Date: 20070524
  Receipt Date: 20070521
  Transmission Date: 20071010
  Serious: Yes (Hospitalization)
  Sender: FDA-Public Use
  Company Number: 070065

PATIENT
  Age: 41 Year
  Sex: Male
  Weight: 102.0593 kg

DRUGS (1)
  1. HALFLYTELY [Suspect]
     Indication: COLONOSCOPY
     Dosage: 20MG/1-8OZ, 1X, PO
     Route: 048
     Dates: start: 20060701

REACTIONS (2)
  - ANAPHYLACTIC REACTION [None]
  - COLON CANCER [None]
